FAERS Safety Report 9691957 (Version 1)
Quarter: 2013Q4

REPORT INFORMATION
  Report Type: Report from Study
  Country: BR (occurrence: BR)
  Receive Date: 20131118
  Receipt Date: 20131118
  Transmission Date: 20140711
  Serious: Yes (Other)
  Sender: FDA-Public Use
  Company Number: BR-ROCHE-1302306

PATIENT
  Age: 59 Year
  Sex: Female
  Weight: 52 kg

DRUGS (10)
  1. XOLAIR [Suspect]
     Indication: ASTHMA
     Route: 065
     Dates: start: 20131105
  2. RIVOTRIL [Suspect]
     Indication: INSOMNIA
     Route: 065
  3. TRILEPTAL [Suspect]
     Indication: CONVULSION
     Route: 065
  4. SERTRALINE [Suspect]
     Indication: DEPRESSION
     Route: 065
  5. SPIRIVA [Suspect]
     Indication: ASTHMA
     Dosage: 20 IN 24 HOURS)
     Route: 065
  6. SERETIDE [Suspect]
     Indication: ASTHMA
     Route: 065
  7. AEROLIN [Suspect]
     Indication: ASTHMA
     Dosage: 2H/3H
     Route: 065
  8. MONTELAIR [Suspect]
     Indication: ASTHMA
     Route: 065
  9. INSULIN [Suspect]
     Indication: PRODUCT USED FOR UNKNOWN INDICATION
     Route: 065
  10. SALBUTAMOL [Suspect]
     Indication: ASTHMA
     Dosage: 2H/3H
     Route: 065

REACTIONS (2)
  - Malaise [Recovering/Resolving]
  - Vision blurred [Recovering/Resolving]
